FAERS Safety Report 13471557 (Version 1)
Quarter: 2017Q2

REPORT INFORMATION
  Report Type: Spontaneous
  Country: US (occurrence: US)
  Receive Date: 20170421
  Receipt Date: 20170421
  Transmission Date: 20170830
  Serious: Yes (Other)
  Sender: FDA-Public Use
  Company Number: None

PATIENT
  Age: 54 Year
  Sex: Female

DRUGS (1)
  1. GLATOPA [Suspect]
     Active Substance: GLATIRAMER ACETATE
     Indication: MULTIPLE SCLEROSIS
     Dosage: 20 MG ONCE A DAY AS DIRECTED
     Dates: start: 20150715

REACTIONS (2)
  - Pneumothorax [None]
  - Cardiac pacemaker insertion [None]

NARRATIVE: CASE EVENT DATE: 20170421
